FAERS Safety Report 9257163 (Version 1)
Quarter: 2013Q1

REPORT INFORMATION
  Report Type: Spontaneous
  Country: US (occurrence: None)
  Receive Date: 20121212
  Receipt Date: 20121212
  Transmission Date: 20140127
  Serious: Yes (Hospitalization)
  Sender: FDA-Public Use
  Company Number: 1210USA013926

PATIENT
  Age: 62 Year
  Sex: Female
  Weight: 97.52 kg

DRUGS (11)
  1. VICTRELIS [Suspect]
     Indication: HEPATITIS C
     Dosage: 800MG, TID (EVERY 7-9 HOURS), ORAL
     Route: 048
     Dates: end: 20121016
  2. RIBAVIRIN [Suspect]
     Indication: HEPATITIS C
     Dosage: UNK
     Dates: end: 20121016
  3. IRON (UNSPECIFIED) [Concomitant]
  4. EPOGEN (EPOETIN ALFA) INJECTION [Concomitant]
  5. NEURONTIN (GABAPENTIN) TABLET, 600MG [Concomitant]
  6. ALLEGRA ALLERGY (FEXOFENADRINE HYDROCHLORIDE) TABLET, 180MG [Concomitant]
  7. ZESTRIL (LISINOPRIL) TABLET, 40MG [Concomitant]
  8. SYNTHROID (EVOTHYROXINE SODIUM) TABLET, 25MG [Concomitant]
  9. ZANTAC (RANITITIDINE HYDROCHLORIDE) TABLET, 150MG [Concomitant]
  10. NEXIUM (ESOMEPRAZOLE MAGNESIUM) CAPSULE, 20MG [Concomitant]
  11. ASPIRIN (ASPIRIN) TABLET, 81MG [Concomitant]

REACTIONS (6)
  - Haemoglobin decreased [None]
  - Dry mouth [None]
  - Ageusia [None]
  - Fall [None]
  - Dizziness [None]
  - Diarrhoea [None]
